FAERS Safety Report 21109214 (Version 2)
Quarter: 2023Q1

REPORT INFORMATION
  Report Type: Spontaneous
  Country: CN (occurrence: CN)
  Receive Date: 20220721
  Receipt Date: 20230327
  Transmission Date: 20230418
  Serious: Yes (Other)
  Sender: FDA-Public Use
  Company Number: CN-NOVARTISPH-NVSC2022CN163627

PATIENT
  Age: 64 Year
  Sex: Female
  Weight: 50 kg

DRUGS (4)
  1. TRAMETINIB [Suspect]
     Active Substance: TRAMETINIB
     Indication: Symptomatic treatment
     Dosage: 2 MG, QD
     Route: 048
     Dates: start: 20220610, end: 20220616
  2. TRAMETINIB [Suspect]
     Active Substance: TRAMETINIB
     Indication: Colon cancer
  3. DABRAFENIB [Suspect]
     Active Substance: DABRAFENIB
     Indication: Symptomatic treatment
     Dosage: 150 MG, BID
     Route: 048
     Dates: start: 20220610, end: 20220616
  4. DABRAFENIB [Suspect]
     Active Substance: DABRAFENIB
     Indication: Colon cancer

REACTIONS (2)
  - Alanine aminotransferase increased [Recovered/Resolved]
  - Aspartate aminotransferase increased [Recovered/Resolved]

NARRATIVE: CASE EVENT DATE: 20220613
